FAERS Safety Report 8312515-4 (Version None)
Quarter: 2012Q2

REPORT INFORMATION
  Report Type: 
  Country: None (occurrence: None)
  Receive Date: 20120425
  Receipt Date: 20120418
  Transmission Date: 20120825
  Serious: Yes (Other)
  Sender: FDA-Public Use
  Company Number: US-MERCK-1204USA02780

PATIENT
  Sex: Female

DRUGS (2)
  1. FEMARA [Concomitant]
     Route: 065
  2. PROPECIA [Suspect]
     Route: 048

REACTIONS (2)
  - DRUG ADMINISTRATION ERROR [None]
  - BREAST CANCER [None]
